FAERS Safety Report 12530521 (Version 1)
Quarter: 2016Q3

REPORT INFORMATION
  Report Type: Spontaneous
  Country: US (occurrence: None)
  Receive Date: 20160705
  Receipt Date: 20160705
  Transmission Date: 20161109
  Serious: Yes (Life-Threatening, Hospitalization)
  Sender: FDA-Public Use
  Company Number: None

PATIENT
  Age: 51 Year
  Sex: Female
  Weight: 80.29 kg

DRUGS (8)
  1. CALCIUM/VITAMIN D [Concomitant]
     Active Substance: CALCIUM\VITAMIN D
  2. IRON [Concomitant]
     Active Substance: IRON
  3. PROZAC [Concomitant]
     Active Substance: FLUOXETINE HYDROCHLORIDE
  4. DETROL LA [Concomitant]
     Active Substance: TOLTERODINE TARTRATE
  5. TYLENOL [Concomitant]
     Active Substance: ACETAMINOPHEN
  6. FLONASE [Concomitant]
     Active Substance: FLUTICASONE PROPIONATE
  7. VOLTAREN [Suspect]
     Active Substance: DICLOFENAC SODIUM
     Indication: ARTHRALGIA
     Route: 048
     Dates: start: 20140618, end: 20140904
  8. LIPITOR [Concomitant]
     Active Substance: ATORVASTATIN CALCIUM

REACTIONS (1)
  - Myocardial infarction [None]

NARRATIVE: CASE EVENT DATE: 20140907
